FAERS Safety Report 8520070-9 (Version None)
Quarter: 2012Q2

REPORT INFORMATION
  Report Type: 
  Country: None (occurrence: None)
  Receive Date: 20120406
  Receipt Date: 20100904
  Transmission Date: 20120825
  Serious: Yes (Hospitalization)
  Sender: FDA-Public Use
  Company Number: PHHY2010US60541

PATIENT
  Age: 27 Year
  Sex: Male

DRUGS (1)
  1. TASIGNA [Suspect]
     Indication: GASTROINTESTINAL STROMAL TUMOUR

REACTIONS (6)
  - METASTASES TO CENTRAL NERVOUS SYSTEM [None]
  - METASTASES TO LIVER [None]
  - TUMOUR HAEMORRHAGE [None]
  - GASTROINTESTINAL STROMAL TUMOUR [None]
  - NEOPLASM PROGRESSION [None]
  - SUBARACHNOID HAEMORRHAGE [None]
